FAERS Safety Report 11832205 (Version 2)
Quarter: 2015Q4

REPORT INFORMATION
  Report Type: Spontaneous
  Country: JP (occurrence: JP)
  Receive Date: 20151214
  Receipt Date: 20151223
  Transmission Date: 20160305
  Serious: Yes (Death, Hospitalization)
  Sender: FDA-Public Use
  Company Number: JP-BAYER-2015-482386

PATIENT
  Age: 82 Year
  Sex: Female

DRUGS (2)
  1. LANSOPRAZOLE. [Suspect]
     Active Substance: LANSOPRAZOLE
     Route: 048
  2. ACETYLSALICYLIC ACID({=100 MG) [Suspect]
     Active Substance: ASPIRIN
     Route: 048

REACTIONS (8)
  - Colitis microscopic [Recovering/Resolving]
  - Diarrhoea [Recovering/Resolving]
  - Death [Fatal]
  - Protein-losing gastroenteropathy [Recovering/Resolving]
  - Nausea [Recovering/Resolving]
  - Oedema [Recovering/Resolving]
  - Blood albumin decreased [Recovering/Resolving]
  - Decreased appetite [Recovering/Resolving]
